FAERS Safety Report 19831839 (Version 2)
Quarter: 2021Q3

REPORT INFORMATION
  Report Type: Spontaneous
  Country: US (occurrence: US)
  Receive Date: 20210914
  Receipt Date: 20210916
  Transmission Date: 20211014
  Serious: No
  Sender: FDA-Public Use
  Company Number: US-VIVUS, INC.-2021V1000167

PATIENT
  Sex: Male

DRUGS (3)
  1. INSULIN PUMP [Concomitant]
     Active Substance: DEVICE\INSULIN NOS
     Indication: TYPE 1 DIABETES MELLITUS
  2. QSYMIA [Suspect]
     Active Substance: PHENTERMINE HYDROCHLORIDE\TOPIRAMATE
     Indication: WEIGHT DECREASED
     Route: 048
     Dates: start: 202104
  3. QSYMIA [Suspect]
     Active Substance: PHENTERMINE HYDROCHLORIDE\TOPIRAMATE
     Indication: WEIGHT DECREASED
     Route: 048
     Dates: end: 202104

REACTIONS (2)
  - Irritability [Unknown]
  - Blood glucose decreased [Not Recovered/Not Resolved]
